FAERS Safety Report 9192142 (Version 1)
Quarter: 2013Q1

REPORT INFORMATION
  Report Type: Spontaneous
  Country: GB (occurrence: None)
  Receive Date: 20130325
  Receipt Date: 20130325
  Transmission Date: 20140127
  Serious: Yes (Hospitalization)
  Sender: FDA-Public Use
  Company Number: GER/GER/13/0028674

PATIENT
  Age: 29 Year
  Sex: Female

DRUGS (1)
  1. FLUOXETINE [Suspect]
     Indication: PRODUCT USED FOR UNKNOWN INDICATION
     Dosage: 20 MG, 1 IN 1 D, ORAL
     Route: 048

REACTIONS (6)
  - Gastrointestinal haemorrhage [None]
  - Nausea [None]
  - Fatigue [None]
  - Vomiting [None]
  - Haematemesis [None]
  - Malaise [None]
